FAERS Safety Report 9329584 (Version 1)
Quarter: 2013Q2

REPORT INFORMATION
  Report Type: Spontaneous
  Country: US (occurrence: US)
  Receive Date: 20130604
  Receipt Date: 20130604
  Transmission Date: 20140414
  Serious: No
  Sender: FDA-Public Use
  Company Number: US-SANOFI-AVENTIS-2013SA030710

PATIENT
  Age: 43 Year
  Sex: Female

DRUGS (6)
  1. LANTUS SOLOSTAR [Suspect]
     Indication: TYPE 2 DIABETES MELLITUS
     Dosage: 20 UNITS IN MORNING AND 22 UNITS IN EVENING
     Route: 051
     Dates: start: 20130228, end: 20130322
  2. SOLOSTAR [Suspect]
     Indication: TYPE 2 DIABETES MELLITUS
  3. METFORMIN [Concomitant]
  4. SIMVASTATIN [Concomitant]
  5. GLIPIZIDE [Concomitant]
  6. LISINOPRIL [Concomitant]

REACTIONS (8)
  - Heart rate increased [Recovering/Resolving]
  - Anxiety [Not Recovered/Not Resolved]
  - Crying [Not Recovered/Not Resolved]
  - Panic attack [Unknown]
  - Throat tightness [Unknown]
  - Dyspnoea [Recovering/Resolving]
  - Skin discolouration [Unknown]
  - Rash macular [Not Recovered/Not Resolved]
